FAERS Safety Report 9610662 (Version 3)
Quarter: 2014Q2

REPORT INFORMATION
  Report Type: Report from Study
  Country: GB (occurrence: GB)
  Receive Date: 20131009
  Receipt Date: 20140410
  Transmission Date: 20141212
  Serious: Yes (Other)
  Sender: FDA-Public Use
  Company Number: GB-PFIZER INC-2013285831

PATIENT
  Age: 58 Year
  Sex: Female

DRUGS (9)
  1. TYGACIL [Suspect]
     Indication: DIVERTICULITIS
     Dosage: 100 MG, 1X/DAY
     Route: 042
     Dates: start: 20130114, end: 20130114
  2. TYGACIL [Suspect]
     Dosage: 50 MG, 2X/DAY
     Route: 042
     Dates: start: 20130114, end: 20130114
  3. HYDROCORTISONE [Concomitant]
  4. CETIRIZINE [Concomitant]
     Dosage: UNK
     Route: 048
     Dates: start: 20130113, end: 20130115
  5. AZTREONAM [Concomitant]
     Indication: DIVERTICULITIS
     Dosage: UNK
     Route: 042
     Dates: start: 20130113, end: 20130113
  6. METRONIDAZOLE [Concomitant]
     Indication: DIVERTICULITIS
     Dosage: UNK
     Route: 042
     Dates: start: 20130113, end: 20130113
  7. PARACETAMOL [Concomitant]
     Indication: ANALGESIC THERAPY
     Dosage: UNK
     Route: 048
     Dates: start: 20130113, end: 20130113
  8. CHLORPHENAMINE [Concomitant]
     Dosage: UNK
     Route: 048
     Dates: start: 20130113, end: 20130114
  9. SALBUTAMOL [Concomitant]
     Dosage: UNK
     Route: 055
     Dates: start: 20130113, end: 20130113

REACTIONS (2)
  - Hypersensitivity [Recovered/Resolved]
  - Dry throat [Recovered/Resolved]
